FAERS Safety Report 8392190-3 (Version None)
Quarter: 2012Q2

REPORT INFORMATION
  Report Type: 
  Country: None (occurrence: None)
  Receive Date: 20120529
  Receipt Date: 20120521
  Transmission Date: 20120825
  Serious: Yes (Other)
  Sender: FDA-Public Use
  Company Number: US-ROCHE-1072651

PATIENT
  Age: 84 Year
  Sex: Male

DRUGS (4)
  1. ALTEPLASE [Suspect]
     Indication: ISCHAEMIC STROKE
  2. ASPIRIN [Concomitant]
  3. METFORMIN HCL [Concomitant]
  4. SIMVASTATIN [Concomitant]

REACTIONS (4)
  - BLINDNESS UNILATERAL [None]
  - VITREOUS HAEMORRHAGE [None]
  - RETINAL HAEMORRHAGE [None]
  - RECTAL HAEMORRHAGE [None]
